FAERS Safety Report 4688541-3 (Version None)
Quarter: 2005Q2

REPORT INFORMATION
  Report Type: 
  Country: None (occurrence: None)
  Receive Date: 20050613
  Receipt Date: 20050603
  Transmission Date: 20051028
  Serious: Yes (Hospitalization, Other)
  Sender: FDA-Public Use
  Company Number: PHFR2005GB02043

PATIENT
  Age: 69 Year
  Sex: Female

DRUGS (1)
  1. THIORIDAZINE HCL [Suspect]
     Indication: DEPRESSION
     Dosage: UNK, UNK
     Route: 065
     Dates: start: 19930101

REACTIONS (3)
  - DEPRESSED MOOD [None]
  - GENERALISED ANXIETY DISORDER [None]
  - PANIC ATTACK [None]
